FAERS Safety Report 20268325 (Version 1)
Quarter: 2021Q4

REPORT INFORMATION
  Report Type: Report from Study
  Country: FR (occurrence: None)
  Receive Date: 20211231
  Receipt Date: 20211231
  Transmission Date: 20220303
  Serious: Yes (Hospitalization)
  Sender: FDA-Public Use
  Company Number: FR-ROCHE-2990306

PATIENT
  Sex: Male

DRUGS (2)
  1. ATEZOLIZUMAB [Suspect]
     Active Substance: ATEZOLIZUMAB
     Indication: Neoplasm
     Route: 041
     Dates: start: 20200507
  2. RUCAPARIB [Suspect]
     Active Substance: RUCAPARIB
     Indication: Neoplasm
     Route: 042
     Dates: start: 20200507, end: 20200507

REACTIONS (1)
  - Anaemia [Recovered/Resolved]
